FAERS Safety Report 4887209-8 (Version None)
Quarter: 2005Q4

REPORT INFORMATION
  Report Type: 
  Country: None (occurrence: None)
  Receive Date: 20051223
  Receipt Date: 20050802
  Transmission Date: 20060501
  Serious: Yes (Hospitalization, Other)
  Sender: FDA-Public Use
  Company Number: US_991233031

PATIENT
  Age: 82 Year
  Sex: Female
  Weight: 51 kg

DRUGS (6)
  1. HUMALOG MIX 75/25 [Suspect]
     Indication: DIABETES MELLITUS
     Dosage: 7 U/2 DAY
     Dates: start: 20020610
  2. HUMALOG [Suspect]
     Indication: DIABETES MELLITUS
     Dosage: 17 U/DAY
     Dates: start: 20000101, end: 20020609
  3. HUMALOG [Suspect]
     Indication: DIABETES MELLITUS
     Dosage: 8 U/DAY
     Dates: start: 19991101, end: 20000101
  4. ASPIRIN [Concomitant]
  5. AGGRENOX [Concomitant]
  6. .. [Concomitant]

REACTIONS (10)
  - ASTHENIA [None]
  - BLOOD GLUCOSE INCREASED [None]
  - CEREBROVASCULAR ACCIDENT [None]
  - DIZZINESS [None]
  - FALL [None]
  - HYPOACUSIS [None]
  - INJECTION SITE HAEMORRHAGE [None]
  - INJECTION SITE REACTION [None]
  - PAIN IN EXTREMITY [None]
  - WEIGHT DECREASED [None]
